FAERS Safety Report 17284477 (Version 1)
Quarter: 2020Q1

REPORT INFORMATION
  Report Type: Spontaneous
  Country: US (occurrence: US)
  Receive Date: 20200117
  Receipt Date: 20200117
  Transmission Date: 20200409
  Serious: No
  Sender: FDA-Public Use
  Company Number: US-NEUROCRINE BIOSCIENCES INC.-2020NBI00129

PATIENT
  Age: 54 Year
  Sex: Female

DRUGS (4)
  1. INGREZZA [Suspect]
     Active Substance: VALBENAZINE
     Indication: TARDIVE DYSKINESIA
  2. INGREZZA [Suspect]
     Active Substance: VALBENAZINE
  3. LITHIUM. [Concomitant]
     Active Substance: LITHIUM
  4. HALDOL [Concomitant]
     Active Substance: HALOPERIDOL

REACTIONS (1)
  - Tardive dyskinesia [Not Recovered/Not Resolved]
